FAERS Safety Report 10183327 (Version 1)
Quarter: 2014Q2

REPORT INFORMATION
  Report Type: Spontaneous
  Country: US (occurrence: US)
  Receive Date: 20140520
  Receipt Date: 20140520
  Transmission Date: 20141212
  Serious: Yes (Hospitalization)
  Sender: FDA-Public Use
  Company Number: US-PFIZER INC-2014135233

PATIENT
  Sex: Female

DRUGS (2)
  1. NORPACE CR [Suspect]
     Dosage: 200 MG, 3X/DAY
     Dates: start: 1991
  2. NORPACE CR [Suspect]
     Dosage: CUT HER DOSE IN HALF

REACTIONS (2)
  - Gallbladder disorder [Unknown]
  - Wrong technique in drug usage process [Unknown]
